FAERS Safety Report 19997230 (Version 2)
Quarter: 2021Q4

REPORT INFORMATION
  Report Type: Report from Study
  Country: DE (occurrence: DE)
  Receive Date: 20211025
  Receipt Date: 20211105
  Transmission Date: 20220303
  Serious: Yes (Death, Life-Threatening, Hospitalization)
  Sender: FDA-Public Use
  Company Number: DE-BAXTER-2021BAX032520

PATIENT
  Age: 19 Year
  Sex: Female
  Weight: 50.9 kg

DRUGS (17)
  1. CYCLOPHOSPHAMIDE [Suspect]
     Active Substance: CYCLOPHOSPHAMIDE
     Indication: Refractory cancer
     Dosage: MAXIMUM 5 DAYS EVERY 21 DAYS
     Route: 042
     Dates: start: 20210821, end: 20210825
  2. CYCLOPHOSPHAMIDE [Suspect]
     Active Substance: CYCLOPHOSPHAMIDE
     Indication: Recurrent cancer
  3. IFOSFAMIDE [Suspect]
     Active Substance: IFOSFAMIDE
     Indication: Synovial sarcoma
     Route: 065
     Dates: start: 20180217, end: 20190504
  4. VENETOCLAX [Suspect]
     Active Substance: VENETOCLAX
     Indication: Refractory cancer
     Route: 048
     Dates: start: 20210819, end: 20210819
  5. VENETOCLAX [Suspect]
     Active Substance: VENETOCLAX
     Indication: Recurrent cancer
     Route: 048
     Dates: start: 20210820
  6. TOPOTECAN HYDROCHLORIDE [Suspect]
     Active Substance: TOPOTECAN HYDROCHLORIDE
     Indication: Refractory cancer
     Dosage: MAXIMUM 5 DAYS EVERY 21 DAYS
     Route: 042
     Dates: start: 20210821, end: 20210825
  7. TOPOTECAN HYDROCHLORIDE [Suspect]
     Active Substance: TOPOTECAN HYDROCHLORIDE
     Indication: Recurrent cancer
  8. PENICILLIN V [Concomitant]
     Active Substance: PENICILLIN V
     Indication: Prophylaxis
     Dosage: 0.5 MEGA
     Route: 048
     Dates: start: 20210718, end: 20210901
  9. PREGABALIN [Concomitant]
     Active Substance: PREGABALIN
     Indication: Neuralgia
     Dosage: 50-50-75 MG
     Route: 048
     Dates: start: 20210708
  10. LACTULOSE [Concomitant]
     Active Substance: LACTULOSE
     Indication: Prophylaxis
     Route: 048
     Dates: start: 20210722, end: 20210830
  11. Novalgin [Concomitant]
     Indication: Tumour pain
     Route: 048
     Dates: start: 20210708, end: 20210901
  12. FENTANYL [Concomitant]
     Active Substance: FENTANYL
     Indication: Tumour pain
     Route: 061
     Dates: start: 20210708
  13. ENANTONE LP [Concomitant]
     Active Substance: LEUPROLIDE ACETATE
     Indication: Hormone replacement therapy
     Route: 030
     Dates: start: 20210718
  14. GRANISETRON [Concomitant]
     Active Substance: GRANISETRON
     Indication: Prophylaxis of nausea and vomiting
     Route: 042
     Dates: start: 20210821
  15. LASIX [Concomitant]
     Active Substance: FUROSEMIDE
     Indication: Urinary retention
     Route: 042
     Dates: start: 20210824, end: 20210901
  16. LASIX [Concomitant]
     Active Substance: FUROSEMIDE
     Dosage: 5 MG/ML, 4.5 ML/HR
     Route: 042
     Dates: start: 20210902
  17. MESNA [Concomitant]
     Active Substance: MESNA
     Indication: Chemotherapy
     Route: 065
     Dates: start: 20210821, end: 20210825

REACTIONS (4)
  - Hypotension [Fatal]
  - Escherichia sepsis [Fatal]
  - Cardiac failure [Fatal]
  - Cystitis haemorrhagic [Unknown]

NARRATIVE: CASE EVENT DATE: 20210825
